FAERS Safety Report 6444618-3 (Version None)
Quarter: 2009Q4

REPORT INFORMATION
  Report Type: 
  Country: None (occurrence: None)
  Receive Date: 20091117
  Receipt Date: 20091117
  Transmission Date: 20100525
  Serious: Yes (Other)
  Sender: FDA-Public Use
  Company Number: None

PATIENT
  Age: 79 Year
  Sex: Male
  Weight: 96.9 kg

DRUGS (1)
  1. OXYBUTYNIN CHLORIDE [Suspect]
     Dosage: 2.5 MG BID PO
     Route: 048
     Dates: start: 20091109

REACTIONS (3)
  - COUGH [None]
  - FALL [None]
  - MUSCULOSKELETAL CHEST PAIN [None]
